FAERS Safety Report 11929299 (Version 2)
Quarter: 2016Q1

REPORT INFORMATION
  Report Type: Report from Study
  Country: CO (occurrence: CO)
  Receive Date: 20160120
  Receipt Date: 20160219
  Transmission Date: 20160526
  Serious: Yes (Death, Life-Threatening, Hospitalization, Disabling)
  Sender: FDA-Public Use
  Company Number: CO-AMGEN-COLSL2016005414

PATIENT
  Age: 68 Year
  Sex: Male

DRUGS (1)
  1. VECTIBIX [Suspect]
     Active Substance: PANITUMUMAB
     Indication: COLORECTAL CANCER METASTATIC
     Dosage: UNK, FORTNIGHTLY
     Route: 042
     Dates: start: 20141015, end: 20151117

REACTIONS (2)
  - Death [Fatal]
  - Vital functions abnormal [Recovering/Resolving]

NARRATIVE: CASE EVENT DATE: 20160114
